FAERS Safety Report 9257560 (Version 1)
Quarter: 2013Q1

REPORT INFORMATION
  Report Type: Spontaneous
  Country: US (occurrence: None)
  Receive Date: 20121212
  Receipt Date: 20121212
  Transmission Date: 20140127
  Serious: No
  Sender: FDA-Public Use
  Company Number: 1208USA011507

PATIENT
  Age: 66 Year
  Sex: Male
  Weight: 72.6 kg

DRUGS (7)
  1. PEGINTRON [Suspect]
     Indication: HEPATITIS C
     Dates: start: 20120224
  2. REBETOL [Suspect]
     Indication: HEPATITIS C
     Route: 048
     Dates: start: 20120224
  3. VICTRELIS [Suspect]
     Indication: HEPATITIS C
     Route: 048
     Dates: start: 20120323
  4. INSULIN (INSULIN) [Concomitant]
  5. METFORMIN (METFOMMIN) [Concomitant]
  6. LISINOPRIL (LISINOPRIL) [Concomitant]
  7. AMBIEN (ZOLPIDEM TARTRATE) [Concomitant]

REACTIONS (17)
  - Adverse event [None]
  - Anaemia [None]
  - Food intolerance [None]
  - Libido decreased [None]
  - Red blood cell count decreased [None]
  - Dysgeusia [None]
  - Sleep disorder [None]
  - Constipation [None]
  - Agitation [None]
  - Weight decreased [None]
  - Nervousness [None]
  - Decreased appetite [None]
  - Decreased appetite [None]
  - Irritability [None]
  - Depression [None]
  - Malaise [None]
  - Cough [None]
